FAERS Safety Report 4773062-X (Version None)
Quarter: 2005Q3

REPORT INFORMATION
  Report Type: 
  Country: None (occurrence: None)
  Receive Date: 20050916
  Receipt Date: 20050825
  Transmission Date: 20060218
  Serious: Yes (Other)
  Sender: FDA-Public Use
  Company Number: US_0506119432

PATIENT
  Sex: Male

DRUGS (2)
  1. CIALIS [Suspect]
     Indication: PROPHYLAXIS
  2. CIALIS [Suspect]
     Indication: TRANSURETHRAL PROSTATECTOMY

REACTIONS (1)
  - BLINDNESS UNILATERAL [None]
